FAERS Safety Report 4786785-3 (Version None)
Quarter: 2005Q4

REPORT INFORMATION
  Report Type: 
  Country: None (occurrence: None)
  Receive Date: 20051004
  Receipt Date: 20050923
  Transmission Date: 20060501
  Serious: Yes (Other)
  Sender: FDA-Public Use
  Company Number: BE-JNJFOC-20050900761

PATIENT
  Sex: Female

DRUGS (3)
  1. ZALDIAR [Suspect]
     Indication: FIBROMYALGIA
     Route: 048
  2. SERTRALINE HCL [Concomitant]
     Route: 065
  3. ANTIDEPRESSANTS [Concomitant]
     Route: 065

REACTIONS (2)
  - DRUG WITHDRAWAL SYNDROME [None]
  - INTRAOCULAR PRESSURE INCREASED [None]
